FAERS Safety Report 23473852 (Version 1)
Quarter: 2024Q1

REPORT INFORMATION
  Report Type: Spontaneous
  Country: None (occurrence: BE)
  Receive Date: 20240203
  Receipt Date: 20240203
  Transmission Date: 20240410
  Serious: Yes (Other)
  Sender: FDA-Public Use
  Company Number: BE-Harrow Eye-2152591

PATIENT
  Age: 37 Year
  Sex: Male

DRUGS (5)
  1. TOBRADEX ST [Suspect]
     Active Substance: DEXAMETHASONE\TOBRAMYCIN
     Indication: Post procedural inflammation
     Route: 047
  2. TRIESENCE [Suspect]
     Active Substance: TRIAMCINOLONE ACETONIDE
     Route: 047
  3. VORETIGENE NEPARVOVEC [Suspect]
     Active Substance: VORETIGENE NEPARVOVEC
  4. PRED FORTE [Suspect]
     Active Substance: PREDNISOLONE ACETATE
  5. METHYLPREDNISOLONE [Suspect]
     Active Substance: METHYLPREDNISOLONE

REACTIONS (3)
  - Systemic lupus erythematosus [Unknown]
  - Intraocular pressure decreased [Unknown]
  - Photophobia [Unknown]
